FAERS Safety Report 10177436 (Version 2)
Quarter: 2014Q2

REPORT INFORMATION
  Report Type: Spontaneous
  Country: US (occurrence: US)
  Receive Date: 20140516
  Receipt Date: 20140516
  Transmission Date: 20141212
  Serious: Yes (Other)
  Sender: FDA-Public Use
  Company Number: US-TEVA-468482USA

PATIENT
  Age: 57 Year
  Sex: Female

DRUGS (1)
  1. TRAZODONE [Suspect]
     Indication: INSOMNIA
     Dates: start: 20140222, end: 20140225

REACTIONS (2)
  - Deafness [Recovered/Resolved]
  - Rash [Unknown]
